FAERS Safety Report 4414514-1 (Version None)
Quarter: 2004Q2

REPORT INFORMATION
  Report Type: 
  Country: None (occurrence: None)
  Receive Date: 20040630
  Receipt Date: 20040428
  Transmission Date: 20050107
  Serious: Yes (Other)
  Sender: FDA-Public Use
  Company Number: 2004029193

PATIENT
  Sex: Male

DRUGS (3)
  1. ZOLOFT [Suspect]
     Indication: ILL-DEFINED DISORDER
  2. OLANZAPINE [Suspect]
     Indication: ILL-DEFINED DISORDER
  3. TRAZODONE HCL [Suspect]
     Indication: ILL-DEFINED DISORDER

REACTIONS (3)
  - MANIA [None]
  - PHYSICAL ASSAULT [None]
  - THEFT [None]
